FAERS Safety Report 8349918-8 (Version None)
Quarter: 2012Q2

REPORT INFORMATION
  Report Type: 
  Country: None (occurrence: None)
  Receive Date: 20120510
  Receipt Date: 20120425
  Transmission Date: 20120825
  Serious: Yes (Hospitalization)
  Sender: FDA-Public Use
  Company Number: DE-INCYTE CORPORATION-2012IN000676

PATIENT
  Sex: Female
  Weight: 72 kg

DRUGS (9)
  1. TRAMADOL HYDROCHLORIDE [Concomitant]
     Dosage: UNK
     Dates: start: 20120412
  2. BISOPROLOL FUMARATE [Concomitant]
     Dosage: UNK
     Dates: start: 20120412
  3. TORSEMIDE [Concomitant]
     Dosage: UNK
     Dates: start: 20120412
  4. XIMOVAN [Concomitant]
     Dosage: UNK
     Dates: start: 20120412
  5. MIRTAZAPINE [Concomitant]
     Dosage: UNK
     Dates: start: 20120412
  6. ASPIRIN [Suspect]
     Indication: PROPHYLAXIS
     Dosage: 100 MG, UNK
  7. VENEX [Concomitant]
     Dosage: UNK
     Dates: start: 20120412
  8. INC424 [Suspect]
     Indication: MYELOFIBROSIS
     Dosage: 35 MG, UNK
     Route: 048
     Dates: start: 20120319, end: 20120418
  9. AMLODIPINE [Concomitant]
     Dosage: UNK
     Dates: start: 20120412

REACTIONS (1)
  - ABDOMINAL WALL HAEMORRHAGE [None]
